FAERS Safety Report 5622362-X (Version None)
Quarter: 2008Q1

REPORT INFORMATION
  Report Type: 
  Country: None (occurrence: None)
  Receive Date: 20080114
  Receipt Date: 20070730
  Transmission Date: 20080703
  Serious: Yes (Other)
  Sender: FDA-Public Use
  Company Number: A03200704915

PATIENT
  Age: 67 Year
  Sex: Female
  Weight: 58.96 kg

DRUGS (4)
  1. PLAVIX [Suspect]
     Indication: THROMBOSIS
     Dosage: 75 MG QD - ORAL
     Route: 048
     Dates: start: 20040101, end: 20070101
  2. ATENOLOL [Concomitant]
  3. CLONIDINE HCL [Concomitant]
  4. AMLODIPINE BESILATE [Concomitant]

REACTIONS (1)
  - CEREBROVASCULAR ACCIDENT [None]
